FAERS Safety Report 13810332 (Version 5)
Quarter: 2018Q1

REPORT INFORMATION
  Report Type: Report from Study
  Country: US (occurrence: US)
  Receive Date: 20170728
  Receipt Date: 20180125
  Transmission Date: 20180508
  Serious: No
  Sender: FDA-Public Use
  Company Number: US-AMGEN-USASL2017080764

PATIENT
  Age: 70 Year
  Sex: Male

DRUGS (1)
  1. REPATHA [Suspect]
     Active Substance: EVOLOCUMAB
     Indication: HYPERCHOLESTEROLAEMIA
     Dosage: 140 MG, Q2WK
     Route: 065
     Dates: start: 201607

REACTIONS (9)
  - Insomnia [Not Recovered/Not Resolved]
  - Injection site bruising [Recovered/Resolved]
  - Tremor [Unknown]
  - Hypertension [Recovering/Resolving]
  - Wrong technique in product usage process [Unknown]
  - Injection site haemorrhage [Unknown]
  - Dehydration [Unknown]
  - Temperature intolerance [Unknown]
  - Muscle spasms [Not Recovered/Not Resolved]

NARRATIVE: CASE EVENT DATE: 201702
